FAERS Safety Report 11032944 (Version 1)
Quarter: 2015Q2

REPORT INFORMATION
  Report Type: Other
  Country: GB (occurrence: GB)
  Receive Date: 20150415
  Receipt Date: 20150415
  Transmission Date: 20150821
  Serious: Yes (Death, Congenital Anomaly, Other)
  Sender: FDA-Public Use
  Company Number: GB-MYLANLABS-2015M1010713

PATIENT

DRUGS (2)
  1. INFLUENZA VIRUS [Suspect]
     Active Substance: INFLUENZA VIRUS VACCINE
     Indication: IMMUNISATION
     Dosage: UNK
     Route: 064
  2. AZATHIOPRINE. [Suspect]
     Active Substance: AZATHIOPRINE
     Indication: COLITIS ULCERATIVE
     Dosage: 50 MG, QD (ONGOING.)
     Route: 064

REACTIONS (4)
  - Cerebral atrophy congenital [Fatal]
  - Spinal muscular atrophy [Not Recovered/Not Resolved]
  - Ischaemia [Not Recovered/Not Resolved]
  - Foetal exposure during pregnancy [Unknown]
